FAERS Safety Report 16667369 (Version 2)
Quarter: 2019Q3

REPORT INFORMATION
  Report Type: Spontaneous
  Country: AU (occurrence: AU)
  Receive Date: 20190805
  Receipt Date: 20190909
  Transmission Date: 20191004
  Serious: Yes (Other)
  Sender: FDA-Public Use
  Company Number: AU-PFIZER INC-2019325348

PATIENT
  Age: 66 Year
  Sex: Male

DRUGS (4)
  1. XELJANZ [Interacting]
     Active Substance: TOFACITINIB CITRATE
     Dosage: UNK
  2. METHOTREXATE SODIUM. [Interacting]
     Active Substance: METHOTREXATE SODIUM
     Dosage: UNK
  3. AMLODIPINE BESILATE [Suspect]
     Active Substance: AMLODIPINE BESYLATE
     Dosage: UNK
  4. BREO ELLIPTA [Concomitant]
     Active Substance: FLUTICASONE FUROATE\VILANTEROL TRIFENATATE
     Indication: BRONCHITIS
     Dosage: UNK

REACTIONS (7)
  - Vomiting [Unknown]
  - Hypertension [Recovered/Resolved]
  - Influenza [Unknown]
  - Arrhythmia [Unknown]
  - Nausea [Unknown]
  - Heart rate decreased [Unknown]
  - Drug interaction [Unknown]
